FAERS Safety Report 9345613 (Version 3)
Quarter: 2013Q4

REPORT INFORMATION
  Report Type: Spontaneous
  Country: HK (occurrence: HK)
  Receive Date: 20130613
  Receipt Date: 20131108
  Transmission Date: 20140711
  Serious: Yes (Hospitalization, Other)
  Sender: FDA-Public Use
  Company Number: HK-UCBSA-074845

PATIENT
  Age: 85 Year
  Sex: Male

DRUGS (2)
  1. NITROGLYCERINE [Suspect]
     Indication: ANGINA PECTORIS
     Dosage: DAILY DOSE:1 TABLET
     Route: 060
  2. DARAPLADIB/SB-480848 [Suspect]
     Indication: CORONARY ARTERY DISEASE
     Dosage: DAILY DOSE:160 MG
     Route: 048
     Dates: start: 20090918, end: 20130401

REACTIONS (5)
  - Acute myocardial infarction [Recovered/Resolved]
  - Supraventricular tachycardia [Recovered/Resolved]
  - Hypotension [Recovered/Resolved]
  - Cellulitis [Recovered/Resolved]
  - Gout [Recovered/Resolved]
